FAERS Safety Report 9040317 (Version 1)
Quarter: 2013Q1

REPORT INFORMATION
  Report Type: Report from Study
  Country: US (occurrence: US)
  Receive Date: 20130129
  Receipt Date: 20130129
  Transmission Date: 20140127
  Serious: No
  Sender: FDA-Public Use
  Company Number: US-ABBOTT-12P-163-0892071-00

PATIENT
  Age: 16 Year
  Sex: Male

DRUGS (5)
  1. HUMIRA 40 MG/0.8 ML PEN [Suspect]
     Indication: ANKYLOSING SPONDYLITIS
     Dates: start: 20111008
  2. NAPROXYN [Concomitant]
     Indication: PRODUCT USED FOR UNKNOWN INDICATION
     Dosage: DAILY
     Route: 048
  3. OTC VITAMIN C SUPPLEMENT [Concomitant]
     Indication: PRODUCT USED FOR UNKNOWN INDICATION
  4. ONE A DAY MENS [Concomitant]
     Indication: VITAMIN SUPPLEMENTATION
  5. NITROBID [Concomitant]
     Indication: CARDIOVASCULAR DISORDER
     Dosage: 2% PRN

REACTIONS (2)
  - Incorrect route of drug administration [Recovered/Resolved]
  - Pain [Recovered/Resolved]
